FAERS Safety Report 8079803 (Version 2)
Quarter: 2012Q4

REPORT INFORMATION
  Report Type: Report from Study
  Country: CN (occurrence: CN)
  Receive Date: 20110808
  Receipt Date: 20121205
  Transmission Date: 20130627
  Serious: Yes (Death)
  Sender: FDA-Public Use
  Company Number: CN-NAPPMUNDI-MAG-2011-0001581

PATIENT
  Age: 40 Year
  Sex: Female

DRUGS (1)
  1. MORPHINE SULFATE [Suspect]
     Indication: PAIN
     Dosage: 10 mg, q4h
     Route: 048
     Dates: start: 20110727, end: 20110728

REACTIONS (2)
  - Respiratory failure [Fatal]
  - Circulatory collapse [Fatal]
